FAERS Safety Report 17828507 (Version 1)
Quarter: 2020Q2

REPORT INFORMATION
  Report Type: Spontaneous
  Country: US (occurrence: US)
  Receive Date: 20200527
  Receipt Date: 20200527
  Transmission Date: 20200714
  Serious: No
  Sender: FDA-Public Use
  Company Number: US-PFIZER INC-2020208048

PATIENT
  Age: 63 Year
  Sex: Female

DRUGS (3)
  1. DETROL LA [Suspect]
     Active Substance: TOLTERODINE TARTRATE
     Indication: POLLAKIURIA
  2. DETROL LA [Suspect]
     Active Substance: TOLTERODINE TARTRATE
     Indication: SPINAL CORD INJURY
     Dosage: 4 MG, 1X/DAY (4MG, ONCE A DAY BY MOUTH)
     Route: 048
  3. DETROL LA [Suspect]
     Active Substance: TOLTERODINE TARTRATE
     Indication: BLADDER DISORDER

REACTIONS (1)
  - Visual impairment [Unknown]
